FAERS Safety Report 7778486-4 (Version None)
Quarter: 2011Q3

REPORT INFORMATION
  Report Type: 
  Country: None (occurrence: None)
  Receive Date: 20110926
  Receipt Date: 20110915
  Transmission Date: 20111222
  Serious: Yes (Hospitalization, Other)
  Sender: FDA-Public Use
  Company Number: US-BAXTER-2011BH028639

PATIENT
  Sex: Male

DRUGS (4)
  1. DIANEAL [Suspect]
     Route: 010
     Dates: start: 20110101, end: 20110901
  2. DIANEAL [Suspect]
     Indication: PERITONEAL DIALYSIS
     Route: 033
     Dates: end: 20110829
  3. DIANEAL [Suspect]
     Route: 033
     Dates: start: 20110901
  4. BLOOD THINNER [Suspect]
     Indication: PRODUCT USED FOR UNKNOWN INDICATION
     Dates: start: 20110501

REACTIONS (4)
  - ATRIAL FIBRILLATION [None]
  - HAEMORRHAGE [None]
  - GASTROINTESTINAL HAEMORRHAGE [None]
  - PNEUMONIA [None]
